FAERS Safety Report 6867392-5 (Version None)
Quarter: 2010Q3

REPORT INFORMATION
  Report Type: 
  Country: None (occurrence: None)
  Receive Date: 20100722
  Receipt Date: 20100715
  Transmission Date: 20110219
  Serious: Yes (Hospitalization)
  Sender: FDA-Public Use
  Company Number: US-GILEAD-2010-0030456

PATIENT
  Age: 82 Year
  Sex: Male
  Weight: 79.268 kg

DRUGS (25)
  1. LETAIRIS [Suspect]
     Indication: PULMONARY ARTERIAL HYPERTENSION
     Route: 048
     Dates: start: 20100224
  2. LASIX [Concomitant]
  3. COUMADIN [Concomitant]
  4. ASPIRIN [Concomitant]
  5. PLAVIX [Concomitant]
  6. COZAAR [Concomitant]
  7. VANCOMYCIN [Concomitant]
  8. SEREVENT [Concomitant]
  9. ZOCOR [Concomitant]
  10. DETROL LA [Concomitant]
  11. LOPRESSOR [Concomitant]
  12. TYLENOL [Concomitant]
  13. GLIPIZIDE [Concomitant]
  14. ZOLOFT [Concomitant]
  15. AMLODIPINE BESYLATE [Concomitant]
  16. IPRATROPIUM BROMIDE [Concomitant]
  17. TRAVATAN [Concomitant]
  18. NEURONTIN [Concomitant]
  19. LANOXIN [Concomitant]
  20. ASCORBIC ACID [Concomitant]
  21. ALBUTEROL [Concomitant]
  22. POTASSIUM [Concomitant]
  23. DOCUSATE [Concomitant]
  24. FERROUS SULFATE [Concomitant]
  25. ADCIRCA [Concomitant]

REACTIONS (1)
  - HAEMORRHAGE [None]
